FAERS Safety Report 4520275-8 (Version None)
Quarter: 2004Q4

REPORT INFORMATION
  Report Type: 
  Country: None (occurrence: None)
  Receive Date: 20041201
  Receipt Date: 20041201
  Transmission Date: 20050328
  Serious: Yes (Hospitalization)
  Sender: FDA-Public Use
  Company Number: None

PATIENT
  Age: 83 Year
  Sex: Male
  Weight: 74.3899 kg

DRUGS (5)
  1. VELCADE [Suspect]
     Indication: MULTIPLE MYELOMA
     Dosage: 1.3 MG/M2 IV
     Route: 042
     Dates: start: 20041109
  2. VELCADE [Suspect]
     Indication: MULTIPLE MYELOMA
     Dosage: 1.3 MG/M2 IV
     Route: 042
     Dates: start: 20041112
  3. VELCADE [Suspect]
     Indication: MULTIPLE MYELOMA
     Dosage: 1.3 MG/M2 IV
     Route: 042
     Dates: start: 20041116
  4. VELCADE [Suspect]
     Dosage: 2.3 MG
     Dates: start: 20041119
  5. ONDANSETRON [Concomitant]

REACTIONS (6)
  - OEDEMA [None]
  - PANCREATITIS ACUTE [None]
  - PITTING OEDEMA [None]
  - PROSTATITIS [None]
  - URINARY RETENTION [None]
  - WEIGHT INCREASED [None]
